FAERS Safety Report 9753605 (Version 2)
Quarter: 2013Q4

REPORT INFORMATION
  Report Type: Spontaneous
  Country: DE (occurrence: DE)
  Receive Date: 20131213
  Receipt Date: 20131213
  Transmission Date: 20140711
  Serious: Yes (Other)
  Sender: FDA-Public Use
  Company Number: PHHY2013DE138333

PATIENT
  Age: 55 Year
  Sex: Female
  Weight: 54 kg

DRUGS (5)
  1. ULTIBRO BREEZHALER [Suspect]
     Indication: ASTHMA
     Dosage: 1 DF, QD
     Dates: start: 20131115, end: 20131119
  2. ULTIBRO BREEZHALER [Suspect]
     Indication: OFF LABEL USE
  3. NASONEX [Concomitant]
     Indication: RHINITIS
  4. MIFLONIDE [Concomitant]
     Indication: ASTHMA
     Dosage: 1 DF, BID
     Route: 055
     Dates: start: 20131115, end: 20131119
  5. LAFAMME [Concomitant]

REACTIONS (7)
  - Angioedema [Recovered/Resolved]
  - Lip swelling [Recovered/Resolved]
  - Swollen tongue [Recovered/Resolved]
  - Oedema mucosal [Recovered/Resolved]
  - Influenza like illness [Recovered/Resolved]
  - Rhinorrhoea [Recovered/Resolved]
  - Headache [Recovered/Resolved]
